FAERS Safety Report 8847058 (Version 1)
Quarter: 2012Q4

REPORT INFORMATION
  Report Type: Spontaneous
  Country: CA (occurrence: None)
  Receive Date: 20121016
  Receipt Date: 20121016
  Transmission Date: 20130627
  Serious: Yes (Other)
  Sender: FDA-Public Use
  Company Number: FK201203002

PATIENT
  Age: 14 Year
  Sex: Female

DRUGS (1)
  1. VALPROATE [Suspect]
     Indication: FEBRILE CONVULSION
     Dosage: started at age 5 yrs.,
     Route: 048

REACTIONS (10)
  - Pancreatogenous diabetes [None]
  - Xanthoma [None]
  - Hypertriglyceridaemia [None]
  - Pancreatitis acute [None]
  - Blood cholesterol increased [None]
  - Ascites [None]
  - Shock [None]
  - Ileus [None]
  - Pleural effusion [None]
  - Pancreatic necrosis [None]
